FAERS Safety Report 7550426-2 (Version None)
Quarter: 2011Q2

REPORT INFORMATION
  Report Type: 
  Country: None (occurrence: None)
  Receive Date: 20110615
  Receipt Date: 20100611
  Transmission Date: 20111010
  Serious: No
  Sender: FDA-Public Use
  Company Number: US-BAUSCH-2010BL003175

PATIENT
  Age: 83 Year
  Sex: Female
  Weight: 90 kg

DRUGS (5)
  1. TIAZAC [Concomitant]
     Indication: HYPERTENSION
     Route: 048
     Dates: start: 20000101
  2. BRIMONIDINE TARTRATE [Suspect]
     Indication: GLAUCOMA
     Route: 047
     Dates: start: 20100501, end: 20100601
  3. SYSTANE [Concomitant]
     Indication: DRY EYE
     Route: 047
  4. COUMADIN [Concomitant]
     Route: 048
  5. COUMADIN [Concomitant]
     Indication: THROMBOSIS
     Route: 048

REACTIONS (8)
  - PYREXIA [None]
  - EYELID OEDEMA [None]
  - FATIGUE [None]
  - SINUSITIS [None]
  - ERYTHEMA OF EYELID [None]
  - EYELIDS PRURITUS [None]
  - EYE PRURITUS [None]
  - CONJUNCTIVAL HAEMORRHAGE [None]
